FAERS Safety Report 22216477 (Version 2)
Quarter: 2023Q2

REPORT INFORMATION
  Report Type: Spontaneous
  Country: US (occurrence: None)
  Receive Date: 20230417
  Receipt Date: 20230517
  Transmission Date: 20230721
  Serious: No
  Sender: FDA-Public Use
  Company Number: 2023A074076

PATIENT
  Sex: Male

DRUGS (1)
  1. BYDUREON BCISE [Suspect]
     Active Substance: EXENATIDE
     Indication: Diabetes mellitus
     Route: 058
     Dates: start: 202206

REACTIONS (4)
  - Mental disorder [Unknown]
  - Product packaging quantity issue [Unknown]
  - Device use issue [Unknown]
  - Wrong technique in product usage process [Unknown]
